FAERS Safety Report 6868622-6 (Version None)
Quarter: 2010Q3

REPORT INFORMATION
  Report Type: 
  Country: None (occurrence: None)
  Receive Date: 20100722
  Receipt Date: 20080606
  Transmission Date: 20110219
  Serious: Yes (Other)
  Sender: FDA-Public Use
  Company Number: US-PFIZER INC-2008048080

PATIENT
  Sex: Male
  Weight: 81.6 kg

DRUGS (3)
  1. CHANTIX [Suspect]
     Indication: SMOKING CESSATION THERAPY
     Dates: start: 20080101, end: 20080501
  2. HYDROCODONE [Concomitant]
     Indication: PAIN
  3. OXYCODONE [Concomitant]
     Indication: PAIN

REACTIONS (7)
  - ANXIETY [None]
  - DECREASED APPETITE [None]
  - DEPRESSION [None]
  - INFLUENZA [None]
  - IRRITABILITY [None]
  - MALAISE [None]
  - SUICIDAL IDEATION [None]
